FAERS Safety Report 6759138-6 (Version None)
Quarter: 2010Q2

REPORT INFORMATION
  Report Type: 
  Country: None (occurrence: None)
  Receive Date: 20100607
  Receipt Date: 20100526
  Transmission Date: 20101027
  Serious: Yes (Other)
  Sender: FDA-Public Use
  Company Number: CA-GENENTECH-302494

PATIENT
  Sex: Female
  Weight: 54.9 kg

DRUGS (1)
  1. XOLAIR [Suspect]
     Indication: ASTHMA
     Dosage: 300 UNK, 1/MONTH
     Route: 058
     Dates: start: 20061127

REACTIONS (5)
  - COUGH [None]
  - HAEMOPTYSIS [None]
  - OROPHARYNGEAL PAIN [None]
  - PHARYNGITIS [None]
  - SPUTUM DISCOLOURED [None]
